FAERS Safety Report 5646395-2 (Version None)
Quarter: 2008Q1

REPORT INFORMATION
  Report Type: 
  Country: None (occurrence: None)
  Receive Date: 20080303
  Receipt Date: 20080201
  Transmission Date: 20080703
  Serious: No
  Sender: FDA-Public Use
  Company Number: US-BAYER-200812752NA

PATIENT
  Age: 60 Year
  Sex: Male

DRUGS (12)
  1. AVELOX [Suspect]
     Indication: DRUG USE FOR UNKNOWN INDICATION
     Dosage: TOTAL DAILY DOSE: 400 MG  UNIT DOSE: 400 MG
     Route: 048
  2. CHANTIX [Suspect]
     Route: 048
  3. ALBUTEROL [Concomitant]
     Route: 055
  4. LANOXIN [Concomitant]
  5. EPIPEN [Concomitant]
  6. IPRATROPIUM BROMIDE [Concomitant]
     Route: 055
  7. LEVOSALBUTAMOL [Concomitant]
  8. LORATADINE [Concomitant]
  9. NITROGLYCERIN [Concomitant]
  10. POTASSIUM CHLORIDE [Concomitant]
  11. RANITIDINE HYDROCHLORIDE [Concomitant]
  12. SIMVASTATIN [Concomitant]

REACTIONS (2)
  - DRUG ERUPTION [None]
  - URTICARIA [None]
